FAERS Safety Report 7427956-7 (Version None)
Quarter: 2011Q2

REPORT INFORMATION
  Report Type: 
  Country: None (occurrence: None)
  Receive Date: 20110421
  Receipt Date: 20110322
  Transmission Date: 20111010
  Serious: Yes (Hospitalization)
  Sender: FDA-Public Use
  Company Number: US-BAYER-2010-001222

PATIENT
  Sex: Female
  Weight: 70.295 kg

DRUGS (3)
  1. YAZ [Suspect]
     Dosage: UNK
     Dates: start: 20040401, end: 20081101
  2. IBUPROFEN [Concomitant]
     Dosage: AS NEEDED
  3. YASMIN [Suspect]
     Indication: ACNE
     Dosage: UNK
     Dates: start: 20040401, end: 20081101

REACTIONS (1)
  - GALLBLADDER DISORDER [None]
